FAERS Safety Report 10075481 (Version 1)
Quarter: 2014Q2

REPORT INFORMATION
  Report Type: Spontaneous
  Country: US (occurrence: None)
  Receive Date: 20140411
  Receipt Date: 20140411
  Transmission Date: 20141212
  Serious: Yes (Hospitalization)
  Sender: FDA-Public Use
  Company Number: None

PATIENT
  Age: 55 Year
  Sex: Male

DRUGS (5)
  1. ZYTIGA [Suspect]
     Indication: PRODUCT USED FOR UNKNOWN INDICATION
     Route: 048
     Dates: start: 20131019
  2. FLOMAX [Concomitant]
  3. CIALIS [Concomitant]
  4. AMBIEN [Concomitant]
  5. XANAX [Concomitant]

REACTIONS (1)
  - Drug dose omission [None]
